FAERS Safety Report 5189061-2 (Version None)
Quarter: 2006Q4

REPORT INFORMATION
  Report Type: 
  Country: None (occurrence: None)
  Receive Date: 20061215
  Receipt Date: 20061208
  Transmission Date: 20070319
  Serious: Yes (Hospitalization)
  Sender: FDA-Public Use
  Company Number: HQWYE346103NOV06

PATIENT
  Age: 23 Year
  Sex: Male
  Weight: 51.5 kg

DRUGS (18)
  1. RAPAMUNE [Suspect]
     Indication: RENAL TRANSPLANT
     Dosage: 3MG 1X PER 1 DAY; ORAL
     Route: 048
     Dates: start: 20021001
  2. LIPITOR [Concomitant]
  3. ROCALTROL [Concomitant]
  4. DEPAKOTE [Concomitant]
  5. FLECAINIDE ACETATE [Concomitant]
  6. ......................... [Concomitant]
  7. REMERON (MIRTRAZAPINE) [Concomitant]
  8. CELLCEPT [Concomitant]
  9. PREDNISONE TAB [Concomitant]
  10. COUMADIN [Concomitant]
  11. LANSOPRAZOLE [Concomitant]
  12. INSULIN [Concomitant]
  13. LANTUS [Concomitant]
  14. CALCIUM CARBONATE [Concomitant]
  15. DIGOXIN [Concomitant]
  16. DEPAKOTE [Concomitant]
  17. ZETIA [Concomitant]
  18. MAGNESIUM OXIDE [Concomitant]

REACTIONS (9)
  - BLOOD GLUCOSE INCREASED [None]
  - BLOOD POTASSIUM DECREASED [None]
  - DRUG INEFFECTIVE [None]
  - INTERNATIONAL NORMALISED RATIO INCREASED [None]
  - MENTAL STATUS CHANGES [None]
  - MIGRAINE [None]
  - MULTIPLE DRUG OVERDOSE [None]
  - SLEEP DISORDER [None]
  - WHITE BLOOD CELL COUNT INCREASED [None]
